FAERS Safety Report 9210901 (Version 2)
Quarter: 2014Q1

REPORT INFORMATION
  Report Type: Spontaneous
  Country: US (occurrence: US)
  Receive Date: 20130404
  Receipt Date: 20140102
  Transmission Date: 20141002
  Serious: Yes (Other)
  Sender: FDA-Public Use
  Company Number: US-BAYER-2013-040256

PATIENT
  Age: 27 Year
  Sex: Female

DRUGS (9)
  1. YAZ [Suspect]
     Dosage: UNK
     Dates: start: 2004, end: 2009
  2. YASMIN [Suspect]
     Dosage: UNK
     Dates: start: 2004, end: 2009
  3. LEVOXYL [Concomitant]
     Dosage: 88 MCG DAILY
     Route: 048
  4. ZEBETA [Concomitant]
     Dosage: 5 MG, QD
     Route: 048
  5. ALBUTEROL [Concomitant]
     Dosage: 1 PUFF(S), PRN
  6. PRILOSEC [Concomitant]
  7. ACTIGALL [Concomitant]
  8. BISOPROLOL [Concomitant]
  9. SYNTHROID [Concomitant]

REACTIONS (7)
  - Gallbladder disorder [None]
  - Biliary dyskinesia [None]
  - Injury [None]
  - Pain [None]
  - Emotional distress [None]
  - Anxiety [None]
  - Psychological trauma [None]
